FAERS Safety Report 25669820 (Version 1)
Quarter: 2025Q3

REPORT INFORMATION
  Report Type: Spontaneous
  Country: US (occurrence: US)
  Receive Date: 20250812
  Receipt Date: 20250812
  Transmission Date: 20251020
  Serious: Yes (Life-Threatening, Hospitalization)
  Sender: DR REDDYS
  Company Number: None

PATIENT
  Age: 29 Year
  Sex: Male

DRUGS (2)
  1. COLCHICINE [Suspect]
     Active Substance: COLCHICINE
     Indication: Product used for unknown indication
  2. CARVEDILOL [Suspect]
     Active Substance: CARVEDILOL
     Indication: Product used for unknown indication

REACTIONS (15)
  - Drug interaction [Unknown]
  - Bradycardia [Unknown]
  - Cardiogenic shock [Unknown]
  - Somnolence [Unknown]
  - Overdose [Unknown]
  - Vomiting [Unknown]
  - Diarrhoea [Unknown]
  - Pulmonary oedema [Unknown]
  - Multiple organ dysfunction syndrome [Unknown]
  - Leukocytosis [Recovering/Resolving]
  - Nausea [Unknown]
  - Blood creatinine increased [Unknown]
  - Aspartate aminotransferase increased [Unknown]
  - Alanine aminotransferase increased [Unknown]
  - Dizziness [Unknown]
